FAERS Safety Report 6779190-1 (Version None)
Quarter: 2010Q2

REPORT INFORMATION
  Report Type: 
  Country: None (occurrence: None)
  Receive Date: 20100618
  Receipt Date: 20100607
  Transmission Date: 20101027
  Serious: Yes (Death)
  Sender: FDA-Public Use
  Company Number: KR-BRISTOL-MYERS SQUIBB COMPANY-15152861

PATIENT
  Sex: Female

DRUGS (3)
  1. BLEOMYCIN SULFATE [Suspect]
     Dosage: DOSE= SUSPENTION ON DAYS 1-3
     Route: 042
  2. CISPLATIN [Suspect]
  3. VINCRISTINE SULFATE [Suspect]

REACTIONS (2)
  - ACUTE RESPIRATORY DISTRESS SYNDROME [None]
  - PULMONARY FIBROSIS [None]
